FAERS Safety Report 5971273-9 (Version None)
Quarter: 2008Q4

REPORT INFORMATION
  Report Type: 
  Country: None (occurrence: None)
  Receive Date: 20081128
  Receipt Date: 20081120
  Transmission Date: 20090506
  Serious: Yes (Hospitalization, Other)
  Sender: FDA-Public Use
  Company Number: US-PFIZER INC-2008087925

PATIENT
  Sex: Female
  Weight: 61 kg

DRUGS (5)
  1. SUTENT [Suspect]
     Indication: MALIGNANT NEOPLASM OF RENAL PELVIS
     Route: 048
     Dates: start: 20080827, end: 20080907
  2. BENICAR [Suspect]
     Indication: HYPERTENSION
     Route: 048
  3. TOPROL-XL [Concomitant]
     Route: 048
  4. DIGOXIN [Concomitant]
     Route: 048
  5. LEXAPRO [Concomitant]
     Route: 048

REACTIONS (4)
  - ASTHENIA [None]
  - FATIGUE [None]
  - NEUROPATHY PERIPHERAL [None]
  - PYREXIA [None]
